FAERS Safety Report 5217193-9 (Version None)
Quarter: 2007Q1

REPORT INFORMATION
  Report Type: 
  Country: None (occurrence: None)
  Receive Date: 20070123
  Receipt Date: 20070123
  Transmission Date: 20070707
  Serious: Yes (Hospitalization)
  Sender: FDA-Public Use
  Company Number: None

PATIENT
  Age: 42 Year
  Sex: Female
  Weight: 72.5755 kg

DRUGS (1)
  1. DICYCLOMINE [Suspect]
     Indication: GASTRIC DISORDER
     Dosage: 20MG 1

REACTIONS (9)
  - ARTHRALGIA [None]
  - ASTHENIA [None]
  - DIZZINESS [None]
  - MOTOR DYSFUNCTION [None]
  - PARAESTHESIA [None]
  - PARALYSIS [None]
  - SPEECH DISORDER [None]
  - THINKING ABNORMAL [None]
  - VISION BLURRED [None]
